FAERS Safety Report 11805426 (Version 1)
Quarter: 2015Q4

REPORT INFORMATION
  Report Type: Spontaneous
  Country: US (occurrence: None)
  Receive Date: 20151204
  Receipt Date: 20151204
  Transmission Date: 20160305
  Serious: No
  Sender: FDA-Public Use
  Company Number: None

PATIENT
  Age: 48 Year
  Sex: Female
  Weight: 72.58 kg

DRUGS (4)
  1. COMBIPATCH [Suspect]
     Active Substance: ESTRADIOL\NORETHINDRONE ACETATE
     Indication: MENOPAUSAL SYMPTOMS
     Dosage: .05/.14
     Route: 062
     Dates: start: 20151106, end: 20151126
  2. CLIMARA [Concomitant]
     Active Substance: ESTRADIOL
  3. PROBIOTICS [Concomitant]
     Active Substance: PROBIOTICS NOS
  4. CENTRUM DAILY VITAMIN [Concomitant]

REACTIONS (4)
  - Depression [None]
  - Disturbance in attention [None]
  - Feeling abnormal [None]
  - Menorrhagia [None]

NARRATIVE: CASE EVENT DATE: 20151110
